FAERS Safety Report 10677354 (Version 1)
Quarter: 2014Q4

REPORT INFORMATION
  Report Type: Spontaneous
  Country: US (occurrence: US)
  Receive Date: 20141226
  Receipt Date: 20141226
  Transmission Date: 20150529
  Serious: No
  Sender: FDA-Public Use
  Company Number: US-BAUSCH-SYM-2013-13015

PATIENT
  Sex: Female

DRUGS (1)
  1. XENAZINE [Suspect]
     Active Substance: TETRABENAZINE
     Indication: TARDIVE DYSKINESIA
     Dosage: 2 TABLETS TWICE DAILY
     Route: 048
     Dates: start: 201303

REACTIONS (3)
  - Mental disorder [Unknown]
  - Fatigue [Unknown]
  - Malaise [Unknown]
